FAERS Safety Report 17872666 (Version 3)
Quarter: 2020Q3

REPORT INFORMATION
  Report Type: Spontaneous
  Country: US (occurrence: US)
  Receive Date: 20200608
  Receipt Date: 20200804
  Transmission Date: 20201103
  Serious: Yes (Other)
  Sender: FDA-Public Use
  Company Number: US-GLAXOSMITHKLINE-US2020AMR090965

PATIENT
  Sex: Female

DRUGS (2)
  1. ZEJULA [Suspect]
     Active Substance: NIRAPARIB
     Dosage: 200 MG, QD
     Dates: end: 20200719
  2. ZEJULA [Suspect]
     Active Substance: NIRAPARIB
     Indication: OVARIAN CANCER
     Dosage: 200 MG, QD
     Dates: start: 20200518

REACTIONS (8)
  - Abdominal discomfort [Unknown]
  - Malignant neoplasm progression [Unknown]
  - Flatulence [Unknown]
  - Drug ineffective [Unknown]
  - Ascites [Unknown]
  - Feeling abnormal [Unknown]
  - Anaemia [Unknown]
  - Carbohydrate antigen 125 increased [Unknown]
